FAERS Safety Report 25377505 (Version 2)
Quarter: 2025Q2

REPORT INFORMATION
  Report Type: Report from Study
  Country: US (occurrence: US)
  Receive Date: 20250530
  Receipt Date: 20250624
  Transmission Date: 20250717
  Serious: No
  Sender: SUNOVION
  Company Number: US-SMPA-2025SPA006422AA

PATIENT

DRUGS (22)
  1. ORGOVYX [Suspect]
     Active Substance: RELUGOLIX
     Indication: Prostate cancer
     Dosage: 360 MG, SINGLE
     Route: 048
  2. ORGOVYX [Suspect]
     Active Substance: RELUGOLIX
     Dosage: 120 MG, QD
     Route: 048
  3. LEVOTHYROXINE [Concomitant]
     Active Substance: LEVOTHYROXINE
     Route: 065
  4. MECLIZINE [Concomitant]
     Active Substance: MECLIZINE HYDROCHLORIDE
     Route: 065
  5. MELOXICAM [Concomitant]
     Active Substance: MELOXICAM
     Route: 065
  6. MIRTAZAPINE [Concomitant]
     Active Substance: MIRTAZAPINE
     Route: 065
  7. MONTELUKAST [Concomitant]
     Active Substance: MONTELUKAST
     Route: 065
  8. NIFEDIPINE [Concomitant]
     Active Substance: NIFEDIPINE
     Route: 065
  9. PANTOPRAZOLE [Concomitant]
     Active Substance: PANTOPRAZOLE
     Route: 065
  10. POTASSIUM CHLORIDE [Concomitant]
     Active Substance: POTASSIUM CHLORIDE
  11. PREGABALIN [Concomitant]
     Active Substance: PREGABALIN
     Route: 065
  12. RESTORIL [Concomitant]
     Active Substance: TEMAZEPAM
     Route: 065
  13. TAMSULOSIN [Concomitant]
     Active Substance: TAMSULOSIN
     Route: 065
  14. TIZANIDINE [Concomitant]
     Active Substance: TIZANIDINE
     Route: 065
  15. TORSEMIDE [Concomitant]
     Active Substance: TORSEMIDE
     Route: 065
  16. ASPIRIN [Concomitant]
     Active Substance: ASPIRIN
     Route: 065
  17. CELECOXIB [Concomitant]
     Active Substance: CELECOXIB
     Route: 065
  18. CILOSTAZOL [Concomitant]
     Active Substance: CILOSTAZOL
     Route: 065
  19. CYPROHEPTADINE HYDROCHLORIDE [Concomitant]
     Active Substance: CYPROHEPTADINE HYDROCHLORIDE
     Route: 065
  20. ESZOPICLONE [Concomitant]
     Active Substance: ESZOPICLONE
     Route: 065
  21. FUROSEMIDE [Concomitant]
     Active Substance: FUROSEMIDE
     Route: 065
  22. POLYETHYLENE GLYCOL 3350 [Concomitant]
     Active Substance: POLYETHYLENE GLYCOL 3350
     Route: 065

REACTIONS (3)
  - Decreased appetite [Recovered/Resolved]
  - Hot flush [Unknown]
  - Weight increased [Unknown]
